FAERS Safety Report 7495720-9 (Version None)
Quarter: 2011Q2

REPORT INFORMATION
  Report Type: 
  Country: None (occurrence: None)
  Receive Date: 20110523
  Receipt Date: 20110511
  Transmission Date: 20111010
  Serious: Yes (Death)
  Sender: FDA-Public Use
  Company Number: US-JNJFOC-20110309394

PATIENT
  Age: 54 Year
  Sex: Female
  Weight: 113.4 kg

DRUGS (8)
  1. STELARA [Suspect]
     Indication: PSORIASIS
     Route: 058
     Dates: start: 20100729
  2. STELARA [Suspect]
     Route: 058
     Dates: start: 20100329
  3. OTHER THERAPEUTICS [Concomitant]
     Dates: start: 20110217
  4. HUMIRA [Concomitant]
  5. STELARA [Suspect]
     Route: 058
     Dates: start: 20100429
  6. HUMIRA [Concomitant]
  7. TRIAMCINOLONE [Concomitant]
  8. HUMIRA [Concomitant]

REACTIONS (2)
  - PSORIASIS [None]
  - MYOCARDIAL INFARCTION [None]
